FAERS Safety Report 6042218-0 (Version None)
Quarter: 2009Q1

REPORT INFORMATION
  Report Type: 
  Country: None (occurrence: None)
  Receive Date: 20090116
  Receipt Date: 20080723
  Transmission Date: 20090719
  Serious: No
  Sender: FDA-Public Use
  Company Number: US-BAYER-200813177BCC

PATIENT
  Age: 74 Year
  Sex: Female
  Weight: 62 kg

DRUGS (5)
  1. ALEVE (CAPLET) [Suspect]
     Indication: ANALGESIA
     Dosage: UNIT DOSE: 220 MG
     Route: 048
     Dates: start: 20080624, end: 20080701
  2. CARTIA XT [Concomitant]
  3. MORPHINE [Concomitant]
  4. MULTI-VITAMIN [Concomitant]
  5. CALTRATE CALCIUM [Concomitant]

REACTIONS (3)
  - ABDOMINAL PAIN [None]
  - CHILLS [None]
  - VULVOVAGINAL BURNING SENSATION [None]
